FAERS Safety Report 16872700 (Version 5)
Quarter: 2021Q3

REPORT INFORMATION
  Report Type: Other
  Country: AT (occurrence: AT)
  Receive Date: 20191001
  Receipt Date: 20210827
  Transmission Date: 20211014
  Serious: Yes (Other)
  Sender: FDA-Public Use
  Company Number: AT-ROCHE-2415586

PATIENT
  Age: 67 Year
  Sex: Female
  Weight: 89 kg

DRUGS (24)
  1. FULVESTRANT. [Suspect]
     Active Substance: FULVESTRANT
     Indication: BREAST CANCER
     Dosage: MOST RECENT DOSE OF FULVESTRANT PRIOR TO THE EVENT: 23/DEC/2018
     Route: 030
     Dates: start: 20181128
  2. MOLAXOLE [Concomitant]
     Active Substance: POLYETHYLENE GLYCOL 3350\POTASSIUM CHLORIDE\SODIUM BICARBONATE\SODIUM CHLORIDE
     Dosage: ONGOING = CHECKED
     Dates: start: 20180715
  3. DEXABENE [Concomitant]
     Dosage: ONGOING = CHECKED
     Dates: start: 20181107
  4. ANASTROZOLE. [Suspect]
     Active Substance: ANASTROZOLE
     Indication: BREAST CANCER
     Dosage: DATE OF MOST RECENT DOSE OF ANASTROZOLE: 14/MAY/2018
     Route: 048
     Dates: start: 20170324
  5. NOVALGIN (AUSTRIA) [Concomitant]
     Indication: PAIN
     Dosage: ONGOING = CHECKED
     Dates: start: 20180715
  6. TORASEMID [Concomitant]
     Active Substance: TORSEMIDE
     Indication: HYPERTENSION
     Dosage: ONGOING = CHECKED
     Dates: start: 20180214
  7. ULSAL [Concomitant]
     Active Substance: RANITIDINE HYDROCHLORIDE
     Dosage: ONGOING = CHECKED
     Dates: start: 20170414
  8. PERTUZUMAB. [Suspect]
     Active Substance: PERTUZUMAB
     Indication: BREAST CANCER
     Dosage: MOST RECENT DOSE OF PERTUZUMAB PRIOR TO THE EVENT: 23/JUL/2018
     Route: 042
     Dates: start: 20170324
  9. TRITAZIDE [Concomitant]
     Active Substance: HYDROCHLOROTHIAZIDE\RAMIPRIL
     Dates: end: 20200424
  10. PANTOPRAZOLE [Concomitant]
     Active Substance: PANTOPRAZOLE
     Dosage: ONGOING = CHECKED
  11. MEXALEN [Concomitant]
     Active Substance: ACETAMINOPHEN
     Dosage: ONGOING = CHECKED
     Dates: start: 20180715
  12. FORTECORTIN [Concomitant]
     Active Substance: DEXAMETHASONE
     Dosage: ONGOING = CHECKED
     Dates: start: 20181017
  13. CAL D VITA [Concomitant]
     Dosage: ONGOING = CHECKED
     Dates: start: 20170505
  14. TRASTUZUMAB. [Suspect]
     Active Substance: TRASTUZUMAB
     Dosage: ON 24/APR/2020, MOST RECENT DOSE
     Route: 041
     Dates: start: 20181219
  15. FENISTIL [Concomitant]
     Active Substance: DIMETHINDENE
     Dosage: ONGOING = CHECKED
     Dates: start: 20170414
  16. FOSTER [Concomitant]
     Active Substance: BECLOMETHASONE\FORMOTEROL
     Indication: DYSPNOEA
     Dosage: ONGOING = CHECKED
     Dates: start: 20171120
  17. KYTRIL [Concomitant]
     Active Substance: GRANISETRON HYDROCHLORIDE
     Dosage: ONGOING = CHECKED
     Dates: start: 20180608
  18. TRASTUZUMAB. [Suspect]
     Active Substance: TRASTUZUMAB
     Indication: BREAST CANCER
     Route: 041
     Dates: start: 20181017, end: 20181017
  19. CONCOR [Concomitant]
     Active Substance: BISOPROLOL FUMARATE
     Indication: HYPERTENSION
     Dosage: ONGOING = CHECKED
     Dates: start: 20180814
  20. XGEVA [Concomitant]
     Active Substance: DENOSUMAB
     Dates: start: 20181017, end: 20201127
  21. TRASTUZUMAB. [Suspect]
     Active Substance: TRASTUZUMAB
     Route: 041
     Dates: start: 20181128, end: 20181128
  22. ACETYLSALICYLIC ACID [Concomitant]
     Active Substance: ASPIRIN
     Indication: HYPERTENSION
     Dosage: ONGOING = NOT CHECKED
     Dates: start: 20171120, end: 20190615
  23. TRASTUZUMAB. [Suspect]
     Active Substance: TRASTUZUMAB
     Indication: BREAST CANCER
     Dosage: MOST RECENT DOSE OF TRASTUZUMAB PRIOR TO THE EVENT: 07/NOV/2018
     Route: 042
     Dates: start: 20170324
  24. DOCETAXEL. [Suspect]
     Active Substance: DOCETAXEL
     Indication: BREAST CANCER
     Dosage: MOST RECENT DOSE OF DOCETAXEL PRIOR TO THE EVENT: 17/OCT/2018
     Route: 042
     Dates: start: 20180608

REACTIONS (1)
  - Pulmonary oedema [Recovering/Resolving]

NARRATIVE: CASE EVENT DATE: 20190704
